FAERS Safety Report 4922137-0 (Version None)
Quarter: 2006Q1

REPORT INFORMATION
  Report Type: 
  Country: None (occurrence: None)
  Receive Date: 20060224
  Receipt Date: 20060217
  Transmission Date: 20060701
  Serious: Yes (Death)
  Sender: FDA-Public Use
  Company Number: FR-JNJFOC-20060201273

PATIENT
  Sex: Male

DRUGS (7)
  1. RISPERDAL CONSTA [Suspect]
     Indication: SCHIZOPHRENIA
     Dosage: TAKEN FOR A SHORT TIME
     Route: 030
     Dates: start: 20051122, end: 20060117
  2. ABILIFY [Concomitant]
     Route: 065
  3. ABILIFY [Concomitant]
     Route: 065
  4. EFFEXOR [Concomitant]
  5. EFFEXOR [Concomitant]
  6. IMOVANE [Concomitant]
  7. SERESTA [Concomitant]
     Dosage: 50-100MG A DAY

REACTIONS (2)
  - CHEST PAIN [None]
  - DEATH [None]
